FAERS Safety Report 12737524 (Version 1)
Quarter: 2016Q3

REPORT INFORMATION
  Report Type: Spontaneous
  Country: US (occurrence: US)
  Receive Date: 20160912
  Receipt Date: 20160912
  Transmission Date: 20161109
  Serious: Yes (Disabling)
  Sender: FDA-Public Use
  Company Number: None

PATIENT
  Age: 67 Year
  Sex: Female
  Weight: 67.5 kg

DRUGS (4)
  1. LEVOTHYROXIN [Concomitant]
     Active Substance: LEVOTHYROXINE
  2. HARVONI [Suspect]
     Active Substance: LEDIPASVIR\SOFOSBUVIR
     Indication: HEPATITIS C
     Route: 048
  3. CHOLINE [Concomitant]
     Active Substance: CHOLINE
  4. BIOTIN [Concomitant]
     Active Substance: BIOTIN

REACTIONS (3)
  - Blood cholesterol increased [None]
  - Flatulence [None]
  - Muscle spasms [None]
